FAERS Safety Report 4676809-6 (Version None)
Quarter: 2005Q2

REPORT INFORMATION
  Report Type: 
  Country: None (occurrence: None)
  Receive Date: 20050527
  Receipt Date: 20050512
  Transmission Date: 20051028
  Serious: Yes (Life-Threatening, Hospitalization, Other)
  Sender: FDA-Public Use
  Company Number: 2004-0007493

PATIENT
  Age: 43 Year
  Sex: Female
  Weight: 76.2043 kg

DRUGS (11)
  1. EMTRICITABINE (EMTRICITABINE) [Suspect]
     Indication: HIV INFECTION
     Dosage: 200 MG, 1 IN 1 D, ORAL
     Route: 048
     Dates: start: 20031208, end: 20040826
  2. D4XT XR (STAVUDINE) [Suspect]
     Indication: HIV INFECTION
     Dosage: 100 MG, 1 IN 1 D, ORAL
     Route: 048
     Dates: start: 20031208, end: 20040826
  3. LOPINAVIR/RITONAVIR (KALETERA) [Suspect]
     Indication: HIV INFECTION
     Dosage: 6 IN 1 D
     Dates: start: 20031208, end: 20040826
  4. BACTRIM DS [Concomitant]
  5. LISINOPRIL [Concomitant]
  6. ASPIRIN [Concomitant]
  7. GLUCOPHAGE [Concomitant]
  8. TRICOR [Concomitant]
  9. NOVOLIN (INSULIN HUMAN INJECTION, ISOPHANE) [Concomitant]
  10. NOVOLOG [Concomitant]
  11. NOVOLOG 70/30 (NOVOLOG MIX) [Concomitant]

REACTIONS (20)
  - ALANINE AMINOTRANSFERASE INCREASED [None]
  - ASPARTATE AMINOTRANSFERASE INCREASED [None]
  - BILIRUBIN CONJUGATED INCREASED [None]
  - BLOOD ALKALINE PHOSPHATASE INCREASED [None]
  - BLOOD BILIRUBIN INCREASED [None]
  - ERUCTATION [None]
  - FATIGUE [None]
  - GAMMA-GLUTAMYLTRANSFERASE INCREASED [None]
  - HEPATIC STEATOSIS [None]
  - HEPATOMEGALY [None]
  - HYPERLACTACIDAEMIA [None]
  - HYPOAESTHESIA [None]
  - LACTIC ACIDOSIS [None]
  - NAUSEA [None]
  - OCULAR ICTERUS [None]
  - RASH PUSTULAR [None]
  - SKIN LESION [None]
  - SPLENOMEGALY [None]
  - VOMITING [None]
  - VULVAL ULCERATION [None]
